FAERS Safety Report 15828829 (Version 1)
Quarter: 2019Q1

REPORT INFORMATION
  Report Type: Spontaneous
  Country: GR (occurrence: GR)
  Receive Date: 20190115
  Receipt Date: 20190115
  Transmission Date: 20190417
  Serious: Yes (Hospitalization, Other)
  Sender: FDA-Public Use
  Company Number: PHHY2019GR003880

PATIENT
  Age: 4 Year
  Sex: Female

DRUGS (1)
  1. AMOXICILLIN TRIHYDRATE +POTASSIUM CLAVULANATE [Suspect]
     Active Substance: AMOXICILLIN\CLAVULANATE POTASSIUM
     Indication: PRODUCT USED FOR UNKNOWN INDICATION
     Dosage: UNK
     Route: 065

REACTIONS (11)
  - Rash maculo-papular [Unknown]
  - Oropharyngeal pain [Unknown]
  - Drug reaction with eosinophilia and systemic symptoms [Unknown]
  - Jaundice [Unknown]
  - Pleural effusion [Unknown]
  - Pyrexia [Unknown]
  - Lymphadenitis [Unknown]
  - Drug ineffective [Unknown]
  - Skin exfoliation [Unknown]
  - Hepatomegaly [Unknown]
  - Empyema [Unknown]
